FAERS Safety Report 4506010-8 (Version None)
Quarter: 2004Q4

REPORT INFORMATION
  Report Type: 
  Country: None (occurrence: None)
  Receive Date: 20041025
  Receipt Date: 20031124
  Transmission Date: 20050328
  Serious: Yes (Other)
  Sender: FDA-Public Use
  Company Number: US-JNJFOC-20030905663

PATIENT
  Age: 39 Year
  Sex: Female
  Weight: 77.1115 kg

DRUGS (2)
  1. REMICADE [Suspect]
     Indication: CROHN'S DISEASE
     Dosage: , 1 IN 1 DAY, INTRAVENOUS
     Route: 042
  2. ENTEROCORT (PREDNISONE ACETATE) [Concomitant]

REACTIONS (1)
  - LUPUS-LIKE SYNDROME [None]
